FAERS Safety Report 4715821-5 (Version None)
Quarter: 2005Q3

REPORT INFORMATION
  Report Type: 
  Country: None (occurrence: None)
  Receive Date: 20050718
  Receipt Date: 20050614
  Transmission Date: 20060218
  Serious: Yes (Hospitalization)
  Sender: FDA-Public Use
  Company Number: 2005AP03295

PATIENT
  Age: 21377 Day
  Sex: Female
  Weight: 47 kg

DRUGS (6)
  1. IRESSA [Suspect]
     Indication: SQUAMOUS CELL CARCINOMA
     Route: 048
     Dates: start: 20050510, end: 20050614
  2. IRESSA [Suspect]
     Route: 048
     Dates: start: 20050624
  3. CISPLATIN [Suspect]
     Indication: SQUAMOUS CELL CARCINOMA
     Dosage: CYCLE 2 NOT GIVEN
     Route: 042
     Dates: start: 20050531
  4. RADIOTHERAPY [Suspect]
     Indication: SQUAMOUS CELL CARCINOMA
  5. ATENOLOL [Concomitant]
     Indication: HYPERTENSION
     Route: 048
     Dates: start: 20050330
  6. LOMOTIL [Concomitant]
     Indication: DIARRHOEA
     Dosage: 75 UG/7.5 MG
     Route: 048
     Dates: start: 20050606

REACTIONS (3)
  - BLOOD PRESSURE DECREASED [None]
  - DIARRHOEA [None]
  - ESCHERICHIA BACTERAEMIA [None]
